FAERS Safety Report 13649082 (Version 2)
Quarter: 2017Q3

REPORT INFORMATION
  Report Type: Report from Study
  Country: US (occurrence: US)
  Receive Date: 20170613
  Receipt Date: 20170710
  Transmission Date: 20171127
  Serious: Yes (Other)
  Sender: FDA-Public Use
  Company Number: US-BAYER-2017-066816

PATIENT
  Age: 65 Year
  Sex: Female

DRUGS (3)
  1. STIVARGA [Suspect]
     Active Substance: REGORAFENIB
     Indication: COLORECTAL CANCER
     Dosage: 120 MG, QD
     Route: 048
     Dates: start: 20170527, end: 2017
  2. STIVARGA [Suspect]
     Active Substance: REGORAFENIB
     Indication: COLORECTAL CANCER
     Dosage: 120 MG DAILY
     Route: 048
     Dates: end: 20170629
  3. STIVARGA [Suspect]
     Active Substance: REGORAFENIB
     Indication: COLORECTAL CANCER
     Dosage: 80 MG, QD
     Route: 048
     Dates: start: 20170403, end: 20170526

REACTIONS (15)
  - Loss of consciousness [None]
  - Back pain [Recovering/Resolving]
  - Urinary tract infection [None]
  - Weight decreased [None]
  - Oropharyngeal pain [None]
  - Blood potassium increased [None]
  - Nausea [None]
  - Drug ineffective [None]
  - Colorectal cancer [None]
  - Vaginal haemorrhage [Not Recovered/Not Resolved]
  - Blood creatinine increased [None]
  - Fatigue [Not Recovered/Not Resolved]
  - Nasopharyngitis [Recovering/Resolving]
  - Fatigue [None]
  - Constipation [Not Recovered/Not Resolved]

NARRATIVE: CASE EVENT DATE: 2017
